FAERS Safety Report 4530824-1 (Version None)
Quarter: 2004Q4

REPORT INFORMATION
  Report Type: 
  Country: None (occurrence: None)
  Receive Date: 20041216
  Receipt Date: 20041207
  Transmission Date: 20050328
  Serious: No
  Sender: FDA-Public Use
  Company Number: 04H-122-0282599-00

PATIENT
  Age: 59 Year
  Sex: Female

DRUGS (6)
  1. PENTOTHAL [Suspect]
     Indication: ANAESTHESIA
     Dosage: 500 MG
     Dates: start: 20041115
  2. MIDAZOLAM HCL [Concomitant]
  3. IOPROMIDE [Concomitant]
  4. PROPOFOL [Concomitant]
  5. SUCCINYLCHOLINE CHLORIDE [Concomitant]
  6. REMIFENTANIL [Concomitant]

REACTIONS (3)
  - BLOOD PRESSURE DECREASED [None]
  - ERYTHEMA [None]
  - PO2 DECREASED [None]
